FAERS Safety Report 11810168 (Version 1)
Quarter: 2015Q4

REPORT INFORMATION
  Report Type: Spontaneous
  Country: US (occurrence: None)
  Receive Date: 20151207
  Receipt Date: 20151207
  Transmission Date: 20160305
  Serious: Yes (Hospitalization)
  Sender: FDA-Public Use
  Company Number: None

PATIENT
  Age: 84 Year
  Sex: Male
  Weight: 79.4 kg

DRUGS (11)
  1. ZESTRIL [Concomitant]
     Active Substance: LISINOPRIL
  2. LASIX [Concomitant]
     Active Substance: FUROSEMIDE
  3. ZOCOR [Concomitant]
     Active Substance: SIMVASTATIN
  4. NTG [Concomitant]
     Active Substance: NITROGLYCERIN
  5. ASPIRIN. [Concomitant]
     Active Substance: ASPIRIN
  6. COREG [Concomitant]
     Active Substance: CARVEDILOL
  7. ELIQUIS [Suspect]
     Active Substance: APIXABAN
     Route: 048
  8. PREDNISONE. [Concomitant]
     Active Substance: PREDNISONE
  9. FLOMAX [Concomitant]
     Active Substance: TAMSULOSIN HYDROCHLORIDE
  10. PROSCAR [Concomitant]
     Active Substance: FINASTERIDE
  11. NORVSC [Concomitant]

REACTIONS (2)
  - Melaena [None]
  - Faeces discoloured [None]

NARRATIVE: CASE EVENT DATE: 20151204
